FAERS Safety Report 21990481 (Version 1)
Quarter: 2023Q1

REPORT INFORMATION
  Report Type: Report from Study
  Country: US (occurrence: US)
  Receive Date: 20230214
  Receipt Date: 20230214
  Transmission Date: 20230418
  Serious: Yes (Other)
  Sender: FDA-Public Use
  Company Number: US-BRISTOL-MYERS SQUIBB COMPANY-2023-019472

PATIENT
  Age: 24 Year
  Sex: Female

DRUGS (3)
  1. ELIQUIS [Suspect]
     Active Substance: APIXABAN
     Indication: Jugular vein thrombosis
     Route: 048
     Dates: start: 202301
  2. ELIQUIS [Suspect]
     Active Substance: APIXABAN
     Dosage: 10 MG BY MOUTH DAILY FOR 7 DAYS.
     Route: 048
     Dates: start: 20230121
  3. NUZYRA [Suspect]
     Active Substance: OMADACYCLINE
     Indication: Atypical mycobacterial infection
     Route: 048
     Dates: start: 20221123

REACTIONS (4)
  - Abdominal pain lower [Not Recovered/Not Resolved]
  - Ulcer [Recovering/Resolving]
  - Internal haemorrhage [Recovering/Resolving]
  - Vomiting [Recovered/Resolved]

NARRATIVE: CASE EVENT DATE: 20220101
